FAERS Safety Report 4909392-8 (Version None)
Quarter: 2006Q1

REPORT INFORMATION
  Report Type: 
  Country: None (occurrence: None)
  Receive Date: 20060210
  Receipt Date: 20060210
  Transmission Date: 20060701
  Serious: Yes (Other)
  Sender: FDA-Public Use
  Company Number: None

PATIENT
  Sex: Female
  Weight: 90.7194 kg

DRUGS (1)
  1. GM-CSF (SARGRAMOSTISM) [Suspect]
     Indication: MALIGNANT MELANOMA
     Dosage: 250 MICROGRAMS, SC (14 DAYS ON 14 DAYS OFF)
     Route: 058
     Dates: start: 20010801, end: 20040601

REACTIONS (3)
  - FEELING HOT AND COLD [None]
  - MULTIPLE SCLEROSIS [None]
  - PARAESTHESIA [None]
